FAERS Safety Report 4553727-5 (Version None)
Quarter: 2004Q4

REPORT INFORMATION
  Report Type: 
  Country: None (occurrence: None)
  Receive Date: 20041227
  Receipt Date: 20040909
  Transmission Date: 20050328
  Serious: No
  Sender: FDA-Public Use
  Company Number: 04P-163-0272799-00

PATIENT
  Age: 45 Year
  Sex: Female
  Weight: 85.2762 kg

DRUGS (6)
  1. HUMIRA [Suspect]
     Indication: RHEUMATOID ARTHRITIS
     Dosage: 40 MG, 1 IN 2 WK, SUBCUTANEOUS
     Route: 058
     Dates: start: 20040825
  2. METHOTREXATE [Concomitant]
  3. BUCINDOLOL HYDROCHLORIDE [Concomitant]
  4. FOLIC ACID [Concomitant]
  5. PAROXETINE HYDROCHLORIDE [Concomitant]
  6. ALLEGRA-D [Concomitant]

REACTIONS (4)
  - HYPERSENSITIVITY [None]
  - PRURITUS [None]
  - SKIN DISCOLOURATION [None]
  - URTICARIA [None]
